FAERS Safety Report 7757397-4 (Version None)
Quarter: 2011Q3

REPORT INFORMATION
  Report Type: 
  Country: None (occurrence: None)
  Receive Date: 20110916
  Receipt Date: 20110907
  Transmission Date: 20111222
  Serious: Yes (Hospitalization)
  Sender: FDA-Public Use
  Company Number: US-ACTELION-A-NJ2011-52043

PATIENT

DRUGS (7)
  1. FLUTICASONE PROPIONATE/SALMETEROL [Concomitant]
  2. EPOPROSTENOL SODIUM [Suspect]
     Indication: PULMONARY ARTERIAL HYPERTENSION
     Dosage: 59 NG/KG, PER MIN
     Route: 041
     Dates: start: 20100818
  3. COUMADIN [Concomitant]
  4. ALBUTEROL [Concomitant]
  5. FUROSEMIDE [Concomitant]
  6. ZOLPIDEM TARTRATE [Concomitant]
  7. LORAZEPAM [Concomitant]

REACTIONS (8)
  - VOMITING [None]
  - COUGH [None]
  - PYREXIA [None]
  - TACHYCARDIA [None]
  - NAUSEA [None]
  - CHEST PAIN [None]
  - HYPOTENSION [None]
  - VIRAL INFECTION [None]
